FAERS Safety Report 5841072-7 (Version None)
Quarter: 2008Q3

REPORT INFORMATION
  Report Type: 
  Country: None (occurrence: None)
  Receive Date: 20080811
  Receipt Date: 20080709
  Transmission Date: 20090109
  Serious: Yes (Other)
  Sender: FDA-Public Use
  Company Number: TR-ELI_LILLY_AND_COMPANY-TR200807002261

PATIENT
  Sex: Male
  Weight: 76 kg

DRUGS (4)
  1. HUMALOG [Suspect]
     Indication: DIABETES MELLITUS
     Dosage: 22 U/MORNING AND 10 U/EVENING
     Route: 058
     Dates: start: 20080101
  2. GLUCOTROL [Concomitant]
     Indication: DIABETES MELLITUS
     Dosage: UNK, UNKNOWN
     Route: 048
  3. DELIX [Concomitant]
     Dosage: 2.5 MG, UNKNOWN
     Route: 048
  4. GLUFORMIN [Concomitant]
     Indication: DIABETES MELLITUS
     Dosage: 850 MG, UNKNOWN
     Route: 048

REACTIONS (3)
  - INJECTION SITE HAEMATOMA [None]
  - PAIN IN EXTREMITY [None]
  - PROSTATIC OPERATION [None]
